FAERS Safety Report 7145042-0 (Version None)
Quarter: 2010Q4

REPORT INFORMATION
  Report Type: 
  Country: None (occurrence: None)
  Receive Date: 20101208
  Receipt Date: 20101126
  Transmission Date: 20110411
  Serious: Yes (Other)
  Sender: FDA-Public Use
  Company Number: PHHY2010JP26355

PATIENT

DRUGS (2)
  1. ZOMETA [Suspect]
     Dosage: UNK
     Route: 042
     Dates: start: 20100412
  2. TASUOMIN [Concomitant]
     Dosage: UNK
     Dates: start: 20040101

REACTIONS (1)
  - NO ADVERSE EVENT [None]
